FAERS Safety Report 14606382 (Version 1)
Quarter: 2018Q1

REPORT INFORMATION
  Report Type: Report from Study
  Country: US (occurrence: US)
  Receive Date: 20180307
  Receipt Date: 20180307
  Transmission Date: 20180509
  Serious: Yes (Hospitalization, Other)
  Sender: FDA-Public Use
  Company Number: US-ACADIA PHARMACEUTICALS INC.-ACA-2018-007729

PATIENT
  Age: 54 Year
  Sex: Female

DRUGS (3)
  1. NUPLAZID [Suspect]
     Active Substance: PIMAVANSERIN TARTRATE
     Indication: PARKINSON^S DISEASE PSYCHOSIS
  2. NUPLAZID [Suspect]
     Active Substance: PIMAVANSERIN TARTRATE
     Indication: HALLUCINATION
     Dosage: 34 MG, QD
     Route: 065
     Dates: start: 201802
  3. NUPLAZID [Suspect]
     Active Substance: PIMAVANSERIN TARTRATE
     Indication: DELUSION

REACTIONS (9)
  - Paranoia [Not Recovered/Not Resolved]
  - Delusion [Unknown]
  - Hallucination [Not Recovered/Not Resolved]
  - Feeling abnormal [Unknown]
  - Poor quality sleep [Unknown]
  - Psychomotor hyperactivity [Unknown]
  - Depression [Unknown]
  - Intentional self-injury [Unknown]
  - Mental disorder [Unknown]

NARRATIVE: CASE EVENT DATE: 201802
